FAERS Safety Report 23761161 (Version 1)
Quarter: 2024Q2

REPORT INFORMATION
  Report Type: Spontaneous
  Country: US (occurrence: US)
  Receive Date: 20240419
  Receipt Date: 20240419
  Transmission Date: 20240716
  Serious: No
  Sender: FDA-Public Use
  Company Number: US-AUROBINDO-AUR-APL-2024-011003

PATIENT
  Age: 49 Year
  Sex: Male
  Weight: 195 kg

DRUGS (2)
  1. LEFLUNOMIDE [Suspect]
     Active Substance: LEFLUNOMIDE
     Indication: Rheumatoid arthritis
     Dosage: UNK
     Route: 065
     Dates: start: 202402
  2. IDACIO [Suspect]
     Active Substance: ADALIMUMAB-AACF
     Indication: Rheumatoid arthritis
     Dosage: UNK
     Route: 065
     Dates: start: 20240216

REACTIONS (2)
  - Rash pustular [Not Recovered/Not Resolved]
  - Rash pruritic [Not Recovered/Not Resolved]

NARRATIVE: CASE EVENT DATE: 20240225
